FAERS Safety Report 13151299 (Version 3)
Quarter: 2017Q3

REPORT INFORMATION
  Report Type: Report from Study
  Country: US (occurrence: US)
  Receive Date: 20170125
  Receipt Date: 20170728
  Transmission Date: 20171127
  Serious: No
  Sender: FDA-Public Use
  Company Number: US-AMGEN-USASL2016182016

PATIENT
  Age: 74 Year
  Sex: Female
  Weight: 73.92 kg

DRUGS (20)
  1. ASPIRIN. [Concomitant]
     Active Substance: ASPIRIN
     Dosage: 81 MG, QD
     Route: 048
  2. VITAMIN D3 [Concomitant]
     Active Substance: CHOLECALCIFEROL
     Dosage: 1000 UNIT, QD
     Route: 048
  3. ADVAIR HFA [Concomitant]
     Active Substance: FLUTICASONE PROPIONATE\SALMETEROL XINAFOATE
     Dosage: 250-50 MUG, BID
     Route: 055
  4. REPATHA [Suspect]
     Active Substance: EVOLOCUMAB
     Indication: HYPERLIPIDAEMIA
  5. FLONASE [Concomitant]
     Active Substance: FLUTICASONE PROPIONATE
     Dosage: 50 MUG, QD
     Route: 045
  6. KENALOG [Concomitant]
     Active Substance: TRIAMCINOLONE ACETONIDE
     Dosage: 0.5%, TID
     Route: 061
  7. REPATHA [Suspect]
     Active Substance: EVOLOCUMAB
     Indication: CORONARY ARTERY DISEASE
  8. CALCIUM CITRATE W/VITAMIN D NOS [Concomitant]
     Dosage: 1500-200 MG
     Route: 048
  9. TAPAZOLE [Concomitant]
     Active Substance: METHIMAZOLE
     Dosage: 10 MG, QD (ONE TABLET EVERY OTHER DAY AND ON THE ALTERNATING DAYS TAKE 1/2 TABLET)
     Route: 048
  10. REPATHA [Suspect]
     Active Substance: EVOLOCUMAB
     Indication: BLOOD LACTATE DEHYDROGENASE ABNORMAL
     Dosage: 140 MG, Q2WK
     Route: 065
     Dates: start: 201606
  11. ZETIA [Concomitant]
     Active Substance: EZETIMIBE
     Dosage: 10 MG, QD
     Route: 048
  12. ULTRAM [Concomitant]
     Active Substance: TRAMADOL HYDROCHLORIDE
     Indication: PAIN
     Dosage: 50 MG, (50 MG TOTAL, EVERY SIX HOURS) AS NECESSARY
     Route: 048
  13. IMDUR [Concomitant]
     Active Substance: ISOSORBIDE MONONITRATE
     Dosage: 30 MG, QD
     Route: 048
  14. MEDI-MECLIZINE [Concomitant]
     Indication: DIZZINESS
     Dosage: 25 MG, TID
     Route: 048
  15. NITROSTAT [Concomitant]
     Active Substance: NITROGLYCERIN
     Indication: CHEST PAIN
     Dosage: 0.4 MG, EVERY FIVE MINUTES AS NECESSARY
     Route: 060
  16. LOVAZA [Concomitant]
     Active Substance: OMEGA-3-ACID ETHYL ESTERS
     Dosage: 2 G (2 CAPSULES, 1 G CAPSULE EACH), BID
     Route: 048
  17. XOPENEX HFA [Concomitant]
     Active Substance: LEVALBUTEROL TARTRATE
     Dosage: 45 MUG (1-2 PUFFS), Q6H
     Route: 055
  18. PROCARDIA [Concomitant]
     Active Substance: NIFEDIPINE
     Dosage: 30 MG, QD
     Route: 048
  19. PRILOSEC [Concomitant]
     Active Substance: OMEPRAZOLE MAGNESIUM
     Dosage: 40 MG, QD
     Route: 048
  20. INDERAL [Concomitant]
     Active Substance: PROPRANOLOL HYDROCHLORIDE
     Dosage: 40 MG, BID (80 MG TOTAL IN 24 HRS)
     Route: 048

REACTIONS (3)
  - Off label use [Unknown]
  - Injection site mass [Recovered/Resolved]
  - Weight increased [Unknown]

NARRATIVE: CASE EVENT DATE: 2016
